FAERS Safety Report 16736576 (Version 2)
Quarter: 2019Q3

REPORT INFORMATION
  Report Type: Report from Study
  Country: US (occurrence: US)
  Receive Date: 20190823
  Receipt Date: 20190826
  Transmission Date: 20191005
  Serious: No
  Sender: FDA-Public Use
  Company Number: PHEH2019US035197

PATIENT
  Sex: Female
  Weight: 44.45 kg

DRUGS (2)
  1. TREPROSTINIL. [Suspect]
     Active Substance: TREPROSTINIL
     Indication: PULMONARY ARTERIAL HYPERTENSION
     Dosage: 121 NG/KG/M IN, CONTINUOUS
     Route: 042
     Dates: start: 20190809
  2. LETAIRIS [Concomitant]
     Active Substance: AMBRISENTAN
     Indication: PRODUCT USED FOR UNKNOWN INDICATION
     Route: 065

REACTIONS (3)
  - Feeling abnormal [Unknown]
  - Dyspnoea [Unknown]
  - Oxygen saturation decreased [Unknown]
